FAERS Safety Report 10003827 (Version 2)
Quarter: 2014Q1

REPORT INFORMATION
  Report Type: Report from Study
  Country: EC (occurrence: EC)
  Receive Date: 20140312
  Receipt Date: 20140317
  Transmission Date: 20141002
  Serious: Yes (Death, Other)
  Sender: FDA-Public Use
  Company Number: PHHY2014EC029643

PATIENT
  Age: 81 Year
  Sex: Male

DRUGS (1)
  1. GLIVEC [Suspect]
     Indication: CHRONIC MYELOID LEUKAEMIA
     Dosage: 400 MG, QD
     Route: 048
     Dates: start: 20140110

REACTIONS (7)
  - Haemorrhage [Fatal]
  - Haematocrit decreased [Fatal]
  - Rectal haemorrhage [Fatal]
  - Haematochezia [Fatal]
  - Mouth haemorrhage [Fatal]
  - Epistaxis [Fatal]
  - Pyrexia [Not Recovered/Not Resolved]
